FAERS Safety Report 20301708 (Version 2)
Quarter: 2022Q1

REPORT INFORMATION
  Report Type: Spontaneous
  Country: US (occurrence: US)
  Receive Date: 20220105
  Receipt Date: 20220321
  Transmission Date: 20220423
  Serious: No
  Sender: FDA-Public Use
  Company Number: US-BIOCRYST-2021BCR00502

PATIENT
  Sex: Female
  Weight: 93.424 kg

DRUGS (2)
  1. ORLADEYO [Suspect]
     Active Substance: BEROTRALSTAT HYDROCHLORIDE
     Indication: Hereditary angioedema with C1 esterase inhibitor deficiency
     Dosage: 150 MG, 1X/DAY
     Route: 048
     Dates: start: 20210315, end: 20210730
  2. FIRAZYR [Concomitant]
     Active Substance: ICATIBANT ACETATE

REACTIONS (5)
  - Therapeutic product ineffective [Recovered/Resolved]
  - Hereditary angioedema [Recovered/Resolved]
  - Condition aggravated [Recovered/Resolved]
  - Malabsorption [Unknown]
  - Product residue present [Unknown]

NARRATIVE: CASE EVENT DATE: 20210101
